FAERS Safety Report 21732419 (Version 6)
Quarter: 2023Q1

REPORT INFORMATION
  Report Type: Report from Study
  Country: US (occurrence: US)
  Receive Date: 20221215
  Receipt Date: 20230323
  Transmission Date: 20230418
  Serious: Yes (Other)
  Sender: FDA-Public Use
  Company Number: US-002147023-NVSC2022US290599

PATIENT
  Sex: Female

DRUGS (1)
  1. ENTRESTO [Suspect]
     Active Substance: SACUBITRIL\VALSARTAN
     Indication: Product used for unknown indication
     Dosage: 1 DOSAGE FORM (49/51 MG), BID
     Route: 065

REACTIONS (16)
  - Myocardial infarction [Unknown]
  - Gastrointestinal carcinoma [Recovering/Resolving]
  - Hepatic cancer [Unknown]
  - Malaise [Unknown]
  - Dysarthria [Unknown]
  - Confusional state [Unknown]
  - Neck pain [Unknown]
  - Back pain [Unknown]
  - Fatigue [Unknown]
  - Pain [Unknown]
  - Memory impairment [Unknown]
  - Diarrhoea [Unknown]
  - Fall [Unknown]
  - Ligament sprain [Unknown]
  - Headache [Unknown]
  - Cough [Unknown]
